FAERS Safety Report 23518739 (Version 1)
Quarter: 2024Q1

REPORT INFORMATION
  Report Type: Spontaneous
  Country: PL (occurrence: PL)
  Receive Date: 20240213
  Receipt Date: 20240213
  Transmission Date: 20240410
  Serious: Yes (Hospitalization)
  Sender: FDA-Public Use
  Company Number: PL-TEVA-2023-PL-2941015

PATIENT
  Age: 29 Year
  Sex: Male

DRUGS (6)
  1. BUPROPION HYDROCHLORIDE\NALTREXONE HYDROCHLORIDE [Interacting]
     Active Substance: BUPROPION HYDROCHLORIDE\NALTREXONE HYDROCHLORIDE
     Indication: Obesity
     Dosage: 90 MG AND 8 MG OF THE ACTIVE INGREDIENTS, RESPECTIVELY, PER TABLET
     Route: 048
  2. OMEPRAZOLE [Interacting]
     Active Substance: OMEPRAZOLE
     Indication: Dyspepsia
     Dosage: 40 MILLIGRAM DAILY;
     Route: 065
  3. ACETAMINOPHEN [Interacting]
     Active Substance: ACETAMINOPHEN
     Indication: Headache
     Dosage: 4000 MILLIGRAM DAILY;
     Route: 065
  4. SEMAGLUTIDE [Interacting]
     Active Substance: SEMAGLUTIDE
     Indication: Obesity
     Dosage: 0.25 MG/WEEK FOR THE FIRST 2 WEEKS
     Route: 058
  5. SEMAGLUTIDE [Interacting]
     Active Substance: SEMAGLUTIDE
     Dosage: THEN 1 MG EVERY 7 DAYS
     Route: 058
  6. SERTRALINE [Interacting]
     Active Substance: SERTRALINE HYDROCHLORIDE
     Indication: Depression
     Dosage: 100 MILLIGRAM DAILY;
     Route: 065

REACTIONS (9)
  - Drug interaction [Unknown]
  - Pancreatitis [Recovered/Resolved]
  - Headache [Recovered/Resolved]
  - Nausea [Recovered/Resolved]
  - Gastrooesophageal reflux disease [Recovered/Resolved]
  - Pain [Recovered/Resolved]
  - Dyspepsia [Recovered/Resolved]
  - Oesophageal pain [Recovered/Resolved]
  - Abdominal pain upper [Recovered/Resolved]
